FAERS Safety Report 5581023-6 (Version None)
Quarter: 2008Q1

REPORT INFORMATION
  Report Type: 
  Country: None (occurrence: None)
  Receive Date: 20080103
  Receipt Date: 20071228
  Transmission Date: 20080703
  Serious: Yes (Hospitalization)
  Sender: FDA-Public Use
  Company Number: US-MERCK-0706USA03761

PATIENT
  Age: 53 Year
  Sex: Female

DRUGS (19)
  1. FOSAMAX [Suspect]
     Indication: OSTEOPOROSIS
     Route: 048
     Dates: start: 19970922, end: 20060523
  2. PREMPRO [Concomitant]
     Indication: HOT FLUSH
     Route: 065
     Dates: start: 19920101, end: 20020101
  3. FLEXERIL [Concomitant]
     Indication: MUSCLE SPASMS
     Route: 065
     Dates: start: 19900101
  4. NEURONTIN [Concomitant]
     Route: 065
  5. [THERAPY UNSPECIFIED] [Concomitant]
     Route: 065
  6. BECLOVENT [Concomitant]
     Route: 065
  7. REMERON [Concomitant]
     Route: 065
  8. RESTASIS [Concomitant]
     Route: 065
  9. FML [Concomitant]
     Route: 065
  10. SINGULAIR [Concomitant]
     Route: 048
  11. ALBUTEROL [Concomitant]
     Route: 065
  12. CALCIUM (UNSPECIFIED) [Concomitant]
     Route: 065
  13. MINERALS (UNSPECIFIED) AND VITAMINS (UNSPECIFIED) [Concomitant]
     Route: 065
  14. VITAMIN E [Concomitant]
     Route: 065
  15. VITA C [Concomitant]
     Route: 065
  16. TYLENOL [Concomitant]
     Route: 065
  17. EXCEDRIN (ACETAMINOPHEN (+) CAFFEINE) [Concomitant]
     Route: 065
  18. VANCERIL [Concomitant]
     Route: 065
  19. ESTROGENS (UNSPECIFIED) AND PROGESTERONE [Concomitant]
     Route: 065

REACTIONS (21)
  - ANXIETY [None]
  - BONE FRAGMENTATION [None]
  - CONJUNCTIVAL HYPERAEMIA [None]
  - CYST [None]
  - DEPRESSION [None]
  - DIZZINESS [None]
  - EAGLES SYNDROME [None]
  - ENDOMETRIAL DISORDER [None]
  - EXOSTOSIS [None]
  - EYELID DISORDER [None]
  - LIMB INJURY [None]
  - MITRAL VALVE PROLAPSE [None]
  - ORAL TORUS [None]
  - POSTMENOPAUSAL HAEMORRHAGE [None]
  - SEASONAL AFFECTIVE DISORDER [None]
  - UTERINE DISORDER [None]
  - UTERINE MALPOSITION [None]
  - UTERINE PROLAPSE [None]
  - VAGINAL DISORDER [None]
  - VEIN DISORDER [None]
  - VULVOVAGINAL DRYNESS [None]
